FAERS Safety Report 4550878-6 (Version None)
Quarter: 2004Q4

REPORT INFORMATION
  Report Type: 
  Country: None (occurrence: None)
  Receive Date: 20041217
  Receipt Date: 20040817
  Transmission Date: 20050328
  Serious: No
  Sender: FDA-Public Use
  Company Number: 2004-BP-06281BP

PATIENT
  Age: 82 Year
  Sex: Male
  Weight: 59 kg

DRUGS (9)
  1. SPIRIVA [Suspect]
     Indication: CHRONIC OBSTRUCTIVE AIRWAYS DISEASE
     Dosage: 18 MCG (18 MCG, 1 IN 1 D), IH
     Route: 055
     Dates: start: 20040701, end: 20040729
  2. XOPENEX [Concomitant]
  3. PREDNISONE [Concomitant]
  4. Z-MAX [Concomitant]
  5. SEREVENT [Concomitant]
  6. PULMICORT [Concomitant]
  7. SINGULAIR [Concomitant]
  8. COUMADIN [Concomitant]
  9. PAXIL [Concomitant]

REACTIONS (1)
  - DIZZINESS [None]
